FAERS Safety Report 6451163-8 (Version None)
Quarter: 2009Q4

REPORT INFORMATION
  Report Type: 
  Country: None (occurrence: None)
  Receive Date: 20091123
  Receipt Date: 20090526
  Transmission Date: 20100525
  Serious: Yes (Hospitalization)
  Sender: FDA-Public Use
  Company Number: US-AMGEN-QUU331519

PATIENT
  Age: 51 Year
  Sex: Female
  Weight: 60.4 kg

DRUGS (5)
  1. ENBREL [Suspect]
     Indication: RHEUMATOID ARTHRITIS
     Route: 058
     Dates: start: 20081007, end: 20081215
  2. METHOTREXATE [Concomitant]
     Dates: start: 19900101
  3. PREDNISONE [Concomitant]
  4. ZOCOR [Concomitant]
  5. LISINOPRIL [Concomitant]

REACTIONS (2)
  - PHARYNGITIS STREPTOCOCCAL [None]
  - SEPSIS [None]
